FAERS Safety Report 23685294 (Version 1)
Quarter: 2024Q1

REPORT INFORMATION
  Report Type: Spontaneous
  Country: US (occurrence: US)
  Receive Date: 20240329
  Receipt Date: 20240329
  Transmission Date: 20240409
  Serious: No
  Sender: FDA-Public Use
  Company Number: US-TAKEDA-2024TUS027294

PATIENT
  Sex: Female
  Weight: 113.8 kg

DRUGS (1)
  1. ADZYNMA [Suspect]
     Active Substance: ADAMTS13, RECOMBINANT-KRHN
     Indication: ADAMTS13 activity decreased
     Dosage: 4500 INTERNATIONAL UNIT, Q2WEEKS
     Route: 042
     Dates: start: 20240321

REACTIONS (2)
  - Product reconstitution quality issue [Unknown]
  - Product dispensing error [Unknown]
